FAERS Safety Report 6219699-2 (Version None)
Quarter: 2009Q2

REPORT INFORMATION
  Report Type: 
  Country: None (occurrence: None)
  Receive Date: 20090605
  Receipt Date: 20090526
  Transmission Date: 20091009
  Serious: Yes (Death)
  Sender: FDA-Public Use
  Company Number: GXKR2009US06212

PATIENT
  Age: 16 Year
  Sex: Male
  Weight: 125 kg

DRUGS (1)
  1. BUPROPION (NGX) (BUPROPION) EXTENDED RELEASE TABLET, 300MG [Suspect]
     Dosage: 30 DF (9 G), ONCE/SINGLE, ORAL
     Route: 048

REACTIONS (11)
  - AGITATION [None]
  - CARDIO-RESPIRATORY ARREST [None]
  - CARDIOMEGALY [None]
  - CONVULSION [None]
  - DRUG TOXICITY [None]
  - HALLUCINATION [None]
  - INTENTIONAL OVERDOSE [None]
  - LOSS OF CONSCIOUSNESS [None]
  - OBESITY [None]
  - PULMONARY OEDEMA [None]
  - VOMITING [None]
